FAERS Safety Report 13340362 (Version 3)
Quarter: 2017Q2

REPORT INFORMATION
  Report Type: Spontaneous
  Country: FR (occurrence: FR)
  Receive Date: 20170316
  Receipt Date: 20170616
  Transmission Date: 20170830
  Serious: Yes (Hospitalization)
  Sender: FDA-Public Use
  Company Number: FR-ACCORD-049110

PATIENT
  Age: 70 Year
  Sex: Male
  Weight: 90 kg

DRUGS (4)
  1. TAHOR [Concomitant]
     Active Substance: ATORVASTATIN CALCIUM
     Dosage: STRENGTH: 20 MG
  2. DOCETAXEL ACCORD [Suspect]
     Active Substance: DOCETAXEL
     Indication: IMMUNOMODULATORY THERAPY
     Dosage: 150 MG IN ONE SINGLE INTAKE (75 MG/M2)?STRENGTH: 160 MG/8 ML
     Route: 042
     Dates: start: 20170215, end: 20170215
  3. TAREG [Concomitant]
     Active Substance: VALSARTAN
  4. SOTALEX [Concomitant]
     Active Substance: SOTALOL
     Dosage: STRENGTH: 80 MG?DOSAGE FORM: TABLET BREACKABLE

REACTIONS (3)
  - Enterocolitis [Recovered/Resolved]
  - General physical health deterioration [Recovered/Resolved]
  - Febrile bone marrow aplasia [Recovered/Resolved]

NARRATIVE: CASE EVENT DATE: 20170219
